FAERS Safety Report 13063591 (Version 1)
Quarter: 2016Q4

REPORT INFORMATION
  Report Type: Spontaneous
  Country: FR (occurrence: FR)
  Receive Date: 20161227
  Receipt Date: 20161227
  Transmission Date: 20170207
  Serious: Yes (Hospitalization)
  Sender: FDA-Public Use
  Company Number: FR-009507513-1612FRA011834

PATIENT
  Age: 66 Year
  Sex: Female

DRUGS (6)
  1. DIPROSONE [Suspect]
     Active Substance: BETAMETHASONE DIPROPIONATE
     Indication: PSORIASIS
     Dosage: UNK
     Route: 061
     Dates: start: 20160915, end: 20160916
  2. PYOSTACINE [Suspect]
     Active Substance: PRISTINAMYCIN
     Indication: PSORIASIS
     Dosage: UNK
     Route: 048
     Dates: start: 20160915, end: 20160916
  3. DICLOFENAC [Suspect]
     Active Substance: DICLOFENAC
     Indication: PSORIASIS
     Dosage: UNK
     Route: 061
     Dates: start: 20160915, end: 20160916
  4. HEXOMEDINE (HEXAMIDINE ISETHIONATE) [Suspect]
     Active Substance: HEXAMIDINE DIISETHIONATE
     Indication: PSORIASIS
     Dosage: UNK
     Route: 061
     Dates: start: 20160915, end: 20160916
  5. KETOCONAZOLE. [Suspect]
     Active Substance: KETOCONAZOLE
     Indication: PSORIASIS
     Dosage: UNK
     Route: 061
     Dates: start: 20160915, end: 20160916
  6. TERBINAFINE. [Suspect]
     Active Substance: TERBINAFINE
     Indication: PSORIASIS
     Dosage: UNK
     Route: 061
     Dates: start: 20160915, end: 20160916

REACTIONS (8)
  - Drug hypersensitivity [Recovering/Resolving]
  - Eosinophilia [Recovering/Resolving]
  - Rash generalised [Recovering/Resolving]
  - Skin lesion [None]
  - Burning sensation [None]
  - Purpura [None]
  - Dermatitis psoriasiform [None]
  - Scar [None]

NARRATIVE: CASE EVENT DATE: 20160916
